FAERS Safety Report 4757812-4 (Version None)
Quarter: 2005Q3

REPORT INFORMATION
  Report Type: 
  Country: None (occurrence: None)
  Receive Date: 20050830
  Receipt Date: 20050819
  Transmission Date: 20060218
  Serious: Yes (Life-Threatening, Hospitalization)
  Sender: FDA-Public Use
  Company Number: 2005-01745

PATIENT
  Age: 68 Year
  Sex: Female
  Weight: 92 kg

DRUGS (8)
  1. VELCADE [Suspect]
     Indication: BREAST CANCER
     Dosage: Q3WEEKS, INTRAVENOUS
     Route: 042
     Dates: start: 20050725
  2. CAPECITABINE (CAPECITABINE) [Suspect]
     Indication: BREAST CANCER
     Dosage: Q3WEEKS, ORAL
     Route: 048
     Dates: start: 20050725
  3. EUGLUCON N (GLIBENCLAMIDE) [Concomitant]
  4. ALLOPURINOL [Concomitant]
  5. TRAMADOL HCL [Concomitant]
  6. ISOPTIN RR PLUS (HYDROCHLOROTHIAZIDE, VERAPAMIL HYDROCHLORIDE) [Concomitant]
  7. GABAPENTIN [Concomitant]
  8. AROMASIN (EXEMESTANE) [Concomitant]

REACTIONS (9)
  - BLOOD UREA INCREASED [None]
  - DEHYDRATION [None]
  - GAIT DISTURBANCE [None]
  - HEADACHE [None]
  - HYPERGLYCAEMIA [None]
  - METABOLIC ACIDOSIS [None]
  - NAUSEA [None]
  - PARAESTHESIA [None]
  - VOMITING [None]
